FAERS Safety Report 4385857-5 (Version None)
Quarter: 2004Q2

REPORT INFORMATION
  Report Type: 
  Country: None (occurrence: None)
  Receive Date: 20040622
  Receipt Date: 20040614
  Transmission Date: 20050107
  Serious: Yes (Other)
  Sender: FDA-Public Use
  Company Number: STA-AE-04-MTX-265

PATIENT
  Sex: Female

DRUGS (1)
  1. METHOTREXATE [Suspect]
     Dosage: 10 MG 1X PER 1 WK
     Dates: start: 20040602

REACTIONS (2)
  - CHEST PAIN [None]
  - SENSATION OF PRESSURE [None]
